FAERS Safety Report 12621990 (Version 1)
Quarter: 2016Q3

REPORT INFORMATION
  Report Type: Spontaneous
  Country: CN (occurrence: CN)
  Receive Date: 20160804
  Receipt Date: 20160804
  Transmission Date: 20161109
  Serious: Yes (Life-Threatening)
  Sender: FDA-Public Use
  Company Number: CN-BAYER-2016-149258

PATIENT
  Age: 67 Year
  Sex: Male
  Weight: 65 kg

DRUGS (2)
  1. PLAVIX [Suspect]
     Active Substance: CLOPIDOGREL BISULFATE
     Indication: CHEST DISCOMFORT
     Dosage: 4 DF, QD
     Route: 048
     Dates: start: 20160524, end: 20160524
  2. BAYASPIRIN [Suspect]
     Active Substance: ASPIRIN
     Indication: CHEST DISCOMFORT
     Dosage: 3 DF, QD
     Route: 048
     Dates: start: 20160524, end: 20160524

REACTIONS (1)
  - Anaphylactic shock [Recovering/Resolving]

NARRATIVE: CASE EVENT DATE: 20160524
